FAERS Safety Report 20350721 (Version 1)
Quarter: 2022Q1

REPORT INFORMATION
  Report Type: Spontaneous
  Country: US (occurrence: None)
  Receive Date: 20220119
  Receipt Date: 20220119
  Transmission Date: 20220423
  Serious: No
  Sender: FDA-Public Use
  Company Number: None

PATIENT
  Sex: Male

DRUGS (1)
  1. TALTZ [Suspect]
     Active Substance: IXEKIZUMAB
     Indication: Psoriasis
     Dosage: 80 MG EVERY 4 WEEKS SUBCUTANEOUSLY
     Route: 058
     Dates: start: 20170523

REACTIONS (5)
  - Pruritus [None]
  - Skin burning sensation [None]
  - Therapy interrupted [None]
  - Drug ineffective [None]
  - Condition aggravated [None]
